FAERS Safety Report 20367062 (Version 1)
Quarter: 2022Q1

REPORT INFORMATION
  Report Type: Spontaneous
  Country: US (occurrence: US)
  Receive Date: 20220123
  Receipt Date: 20220123
  Transmission Date: 20220423
  Serious: No
  Sender: FDA-Public Use
  Company Number: US-BRACCO-2021US04370

PATIENT
  Sex: Female

DRUGS (2)
  1. TAGITOL V [Suspect]
     Active Substance: BARIUM SULFATE
     Indication: Computerised tomogram abdomen
     Dosage: 3 BOTTLES 20 ML EACH TOTAL 60 MLS SINGLE
     Dates: start: 20211014, end: 20211014
  2. MAGNESIUM CITRATE [Suspect]
     Active Substance: MAGNESIUM CITRATE
     Indication: Computerised tomogram abdomen
     Dosage: UNK
     Dates: start: 20211014, end: 20211014

REACTIONS (7)
  - Fatigue [Unknown]
  - Asthenia [Recovered/Resolved]
  - Chest discomfort [Recovered/Resolved]
  - Illness [Recovered/Resolved]
  - Dizziness [Recovered/Resolved]
  - Vomiting [Recovered/Resolved]
  - Abdominal distension [Recovered/Resolved]

NARRATIVE: CASE EVENT DATE: 20211014
